FAERS Safety Report 18146449 (Version 11)
Quarter: 2021Q4

REPORT INFORMATION
  Report Type: Spontaneous
  Country: JP (occurrence: JP)
  Receive Date: 20200813
  Receipt Date: 20211229
  Transmission Date: 20220303
  Serious: Yes (Hospitalization, Other)
  Sender: FDA-Public Use
  Company Number: JP-ONO-2019JP034035

PATIENT
  Age: 54 Year
  Sex: Female
  Weight: 45 kg

DRUGS (29)
  1. PARSABIV [Suspect]
     Active Substance: ETELCALCETIDE HYDROCHLORIDE
     Indication: Hyperparathyroidism secondary
     Dosage: 2.5 MG, Q56H
     Route: 010
     Dates: start: 20200720
  2. DARBEPOETIN ALFA [Concomitant]
     Active Substance: DARBEPOETIN ALFA
     Indication: Nephrogenic anaemia
     Dosage: 60 MICROGRAM, QWK
     Route: 042
     Dates: start: 20190816, end: 20190927
  3. DARBEPOETIN ALFA [Concomitant]
     Active Substance: DARBEPOETIN ALFA
     Dosage: 80 MICROGRAM, QWK
     Route: 042
     Dates: start: 20191004, end: 20200131
  4. DARBEPOETIN ALFA [Concomitant]
     Active Substance: DARBEPOETIN ALFA
     Dosage: 120 MICROGRAM, QWK
     Route: 042
     Dates: start: 20200207
  5. OXAROL [Concomitant]
     Active Substance: MAXACALCITOL
     Indication: Hyperparathyroidism secondary
     Dosage: 5 UG, Q56H
     Route: 065
     Dates: end: 20181207
  6. OXAROL [Concomitant]
     Active Substance: MAXACALCITOL
     Dosage: 5 UG, Q84H
     Route: 065
     Dates: start: 20181210, end: 20190208
  7. OXAROL [Concomitant]
     Active Substance: MAXACALCITOL
     Dosage: 10 UG, QW
     Route: 065
     Dates: start: 20181212, end: 20190206
  8. OXAROL [Concomitant]
     Active Substance: MAXACALCITOL
     Dosage: 10 UG, Q56H
     Route: 065
     Dates: start: 20190211, end: 20190916
  9. OXAROL [Concomitant]
     Active Substance: MAXACALCITOL
     Dosage: 5 UG, Q56H
     Route: 065
     Dates: start: 20190918
  10. FOSRENOL [Concomitant]
     Active Substance: LANTHANUM CARBONATE
     Indication: Hyperphosphataemia
     Dosage: 1500 MILLIGRAM, QD
     Route: 048
     Dates: end: 20200531
  11. FOSRENOL [Concomitant]
     Active Substance: LANTHANUM CARBONATE
     Dosage: 2250 MILLIGRAM, QD
     Route: 048
     Dates: start: 20200601, end: 20200802
  12. ZINC [Concomitant]
     Active Substance: ZINC
     Indication: Hypozincaemia
     Dosage: 50 MILLIGRAM, QD
     Route: 048
     Dates: start: 20200713, end: 20200802
  13. NADIFLOXACIN [Concomitant]
     Active Substance: NADIFLOXACIN
     Dosage: UNK
     Dates: start: 20200720
  14. NEXIUM [Concomitant]
     Active Substance: ESOMEPRAZOLE MAGNESIUM
     Indication: Gastric ulcer
     Dosage: 20 MILLIGRAM, QD
     Route: 048
  15. PITAVASTATIN CALCIUM [Concomitant]
     Active Substance: PITAVASTATIN CALCIUM
     Indication: Dyslipidaemia
     Dosage: 1 MILLIGRAM, QD
     Route: 048
     Dates: start: 20180716, end: 20200802
  16. OLMESARTAN MEDOXOMIL [Concomitant]
     Active Substance: OLMESARTAN MEDOXOMIL
     Indication: Hypertension
     Dosage: 20 MILLIGRAM, QD
     Route: 048
     Dates: start: 20181022
  17. NIFEDIPINE CR SANWA [Concomitant]
     Indication: Hypertension
     Dosage: 40 MG, EVERYDAY
     Route: 048
     Dates: start: 20190129, end: 20200804
  18. NIFEDIPINE CR SANWA [Concomitant]
     Dosage: 20 MG, EVERYDAY
     Route: 048
     Dates: start: 20190129
  19. LANTHANUM CARBONATE [Concomitant]
     Active Substance: LANTHANUM CARBONATE
     Indication: Hyperphosphataemia
     Dosage: 2250 MILLIGRAM, QD
     Route: 048
     Dates: start: 20200601, end: 20200802
  20. CALCIUM CARBONATE [Concomitant]
     Active Substance: CALCIUM CARBONATE
     Indication: Hyperphosphataemia
     Dosage: 2000 MILLIGRAM, QD
     Route: 048
     Dates: end: 20180611
  21. CALCIUM CARBONATE [Concomitant]
     Active Substance: CALCIUM CARBONATE
     Dosage: 2500 MILLIGRAM, QD
     Route: 048
     Dates: start: 20180611, end: 20190418
  22. CALCIUM CARBONATE [Concomitant]
     Active Substance: CALCIUM CARBONATE
     Dosage: 3000 MILLIGRAM, QD
     Route: 048
     Dates: start: 20190419, end: 20200802
  23. IRON SUCROSE [Concomitant]
     Active Substance: IRON SUCROSE
     Indication: Nephrogenic anaemia
     Dosage: 40 MILLIGRAM, QWK
     Route: 042
     Dates: end: 20180803
  24. IRON SUCROSE [Concomitant]
     Active Substance: IRON SUCROSE
     Dosage: 40 MILLIGRAM, QWK
     Route: 042
     Dates: start: 20190215, end: 20190419
  25. IRON SUCROSE [Concomitant]
     Active Substance: IRON SUCROSE
     Dosage: 40 MILLIGRAM, QWK
     Route: 042
     Dates: start: 20191011, end: 20191213
  26. IRON SUCROSE [Concomitant]
     Active Substance: IRON SUCROSE
     Dosage: 40 MILLIGRAM, QWK
     Route: 042
     Dates: start: 20200313, end: 20200522
  27. IRON SUCROSE [Concomitant]
     Active Substance: IRON SUCROSE
     Dosage: 40 MILLIGRAM, QWK
     Route: 042
     Dates: start: 20200724, end: 20200731
  28. IRON SUCROSE [Concomitant]
     Active Substance: IRON SUCROSE
     Dosage: 40 MILLIGRAM, QWK
     Route: 042
     Dates: start: 20200919, end: 20201120
  29. NIFEDIPINE [Concomitant]
     Active Substance: NIFEDIPINE
     Dosage: 1 DOSAGE FORM, ASNECESSARY
     Route: 048
     Dates: start: 20200902

REACTIONS (3)
  - Bile duct stone [Recovered/Resolved]
  - Cholecystitis [Recovered/Resolved]
  - Cellulitis [Recovered/Resolved]

NARRATIVE: CASE EVENT DATE: 20200802
